FAERS Safety Report 8790026 (Version 1)
Quarter: 2012Q4

REPORT INFORMATION
  Report Type: Report from Study
  Country: JP (occurrence: JP)
  Receive Date: 20120917
  Receipt Date: 20120917
  Transmission Date: 20130627
  Serious: Yes (Other)
  Sender: FDA-Public Use
  Company Number: JP-VERTEX PHARMACEUTICAL INC.-AE-2012-009061

PATIENT
  Age: 69 Year
  Sex: Male

DRUGS (16)
  1. VX-950 [Suspect]
     Indication: HEPATITIS C
     Dosage: 1500 mg, qd
     Route: 048
     Dates: start: 20120307, end: 20120324
  2. VX-950 [Suspect]
     Dosage: 1000 mg, qd
     Route: 048
     Dates: start: 20120425, end: 20120530
  3. PEGINTERFERON ALFA-2B [Suspect]
     Indication: HEPATITIS C
     Dosage: 1.5 ?g/kg, UNK
     Route: 058
     Dates: start: 20120307, end: 20120627
  4. PEGINTERFERON ALFA-2B [Suspect]
     Dosage: 80 ?g, UNK
     Route: 058
     Dates: start: 20120704, end: 20120718
  5. RIBAVIRIN [Suspect]
     Indication: HEPATITIS C
     Dosage: 600 mg, qd
     Route: 048
     Dates: start: 20120307, end: 20120320
  6. RIBAVIRIN [Suspect]
     Dosage: 400 mg, qd
     Route: 048
     Dates: start: 20120321, end: 20120410
  7. RIBAVIRIN [Suspect]
     Dosage: 200 mg, qd
     Route: 048
     Dates: start: 20120411, end: 20120418
  8. RIBAVIRIN [Suspect]
     Dosage: 200 mg, qod
     Route: 048
     Dates: start: 20120419, end: 20120612
  9. RIBAVIRIN [Suspect]
     Dosage: 200 mg, qd
     Route: 048
     Dates: start: 20120613, end: 20120724
  10. ZYLORIC [Concomitant]
     Route: 048
  11. MYSLEE [Concomitant]
     Route: 048
  12. MYSLEE [Concomitant]
     Dosage: 2.5 mg, prn
     Route: 048
  13. BENECID [Concomitant]
     Dosage: 250 mg, qd
     Route: 048
     Dates: end: 20120613
  14. DOGMATYL [Concomitant]
     Dosage: 150 mg, qd
     Route: 048
     Dates: end: 20120613
  15. OMEPRAZON [Concomitant]
     Dosage: 10 mg, qd
     Route: 048
  16. LOXONIN [Concomitant]
     Dosage: 60 mg, prn
     Route: 048
     Dates: start: 20120324

REACTIONS (2)
  - Depression [Recovered/Resolved]
  - Anaemia [Recovered/Resolved]
